FAERS Safety Report 17426486 (Version 1)
Quarter: 2020Q1

REPORT INFORMATION
  Report Type: Spontaneous
  Country: DE (occurrence: DE)
  Receive Date: 20200217
  Receipt Date: 20200217
  Transmission Date: 20200409
  Serious: Yes (Other)
  Sender: FDA-Public Use
  Company Number: DE-TEVA-2020-DE-1186990

PATIENT
  Age: 18 Month
  Sex: Male
  Weight: 14 kg

DRUGS (1)
  1. SALBUTAMOL INHALAT 10 ML [Suspect]
     Active Substance: ALBUTEROL
     Indication: BRONCHITIS
     Dosage: 3X2 DROPS , 6 GTT 1 DAYS

REACTIONS (2)
  - Hallucination, visual [Recovered/Resolved]
  - Screaming [Recovered/Resolved]

NARRATIVE: CASE EVENT DATE: 201903
